FAERS Safety Report 12727223 (Version 1)
Quarter: 2016Q3

REPORT INFORMATION
  Report Type: Spontaneous
  Country: US (occurrence: US)
  Receive Date: 20160909
  Receipt Date: 20160909
  Transmission Date: 20161109
  Serious: No
  Sender: FDA-Public Use
  Company Number: US-ASTRAZENECA-2016SE92067

PATIENT
  Sex: Female

DRUGS (2)
  1. BYDUREON [Suspect]
     Active Substance: EXENATIDE
     Indication: POLYCYSTIC OVARIES
     Route: 058
     Dates: start: 201605, end: 201608
  2. BYDUREON [Suspect]
     Active Substance: EXENATIDE
     Indication: WEIGHT DECREASED
     Route: 058
     Dates: start: 201605, end: 201608

REACTIONS (4)
  - Vomiting [Unknown]
  - Feeling abnormal [Unknown]
  - Drug dose omission [Unknown]
  - Diarrhoea [Unknown]
